FAERS Safety Report 9604775 (Version 2)
Quarter: 2013Q4

REPORT INFORMATION
  Report Type: Report from Study
  Country: BR (occurrence: BR)
  Receive Date: 20131008
  Receipt Date: 20131008
  Transmission Date: 20140711
  Serious: Yes (Other)
  Sender: FDA-Public Use
  Company Number: BR-ABBVIE-13P-020-1136235-00

PATIENT
  Sex: Male
  Weight: 93 kg

DRUGS (6)
  1. HUMIRA [Suspect]
     Indication: ANKYLOSING SPONDYLITIS
     Route: 058
     Dates: start: 20120828, end: 201303
  2. HUMIRA [Suspect]
     Route: 058
  3. METHOTREXATE [Concomitant]
     Indication: ANKYLOSING SPONDYLITIS
     Dosage: ON THURSDAYS
     Route: 048
     Dates: start: 2011, end: 201303
  4. METHOTREXATE [Concomitant]
     Dosage: ON THURSDAYS
  5. FOLIC ACID [Concomitant]
     Indication: PRODUCT USED FOR UNKNOWN INDICATION
     Dosage: ON FRIDAYS
     Dates: start: 201303
  6. FOLIC ACID [Concomitant]
     Dosage: ON FRIDAYS

REACTIONS (4)
  - Myopia [Recovered/Resolved]
  - Astigmatism [Recovered/Resolved]
  - Injection site erythema [Unknown]
  - Injection site pruritus [Unknown]
